FAERS Safety Report 16011792 (Version 1)
Quarter: 2019Q1

REPORT INFORMATION
  Report Type: Spontaneous
  Country: US (occurrence: US)
  Receive Date: 20190226
  Receipt Date: 20190226
  Transmission Date: 20190418
  Serious: Yes (Hospitalization, Disabling)
  Sender: FDA-Public Use
  Company Number: None

PATIENT
  Age: 69 Year
  Sex: Female
  Weight: 78.75 kg

DRUGS (10)
  1. ALLOPURINOL. [Concomitant]
     Active Substance: ALLOPURINOL
  2. GABAPENTIN. [Concomitant]
     Active Substance: GABAPENTIN
  3. KEYTRUDA [Suspect]
     Active Substance: PEMBROLIZUMAB
     Indication: CHRONIC LYMPHOCYTIC LEUKAEMIA
     Dosage: ?          OTHER FREQUENCY:CLINICAL TRIAL;?
     Route: 042
     Dates: start: 20180709, end: 20180830
  4. CITALOPRAM [Concomitant]
     Active Substance: CITALOPRAM HYDROBROMIDE
  5. CALCIUM NITRATE [Concomitant]
     Active Substance: CALCIUM NITRATE
  6. OMEPRAZOLE. [Concomitant]
     Active Substance: OMEPRAZOLE
  7. ELIQUIS [Concomitant]
     Active Substance: APIXABAN
  8. LEVOTHYROXINE. [Concomitant]
     Active Substance: LEVOTHYROXINE
  9. CELEBREX [Concomitant]
     Active Substance: CELECOXIB
  10. MONTELUKAST [Concomitant]
     Active Substance: MONTELUKAST SODIUM

REACTIONS (6)
  - Motor dysfunction [None]
  - Gait disturbance [None]
  - Abdominal tenderness [None]
  - Fall [None]
  - Spinal pain [None]
  - Inflammation [None]

NARRATIVE: CASE EVENT DATE: 20181205
